FAERS Safety Report 15616690 (Version 1)
Quarter: 2018Q4

REPORT INFORMATION
  Report Type: Spontaneous
  Country: CA (occurrence: CA)
  Receive Date: 20181114
  Receipt Date: 20181114
  Transmission Date: 20190205
  Serious: Yes (Hospitalization, Other)
  Sender: FDA-Public Use
  Company Number: CA-TEVA-2018-CA-975763

PATIENT
  Age: 52 Year
  Sex: Female
  Weight: 48 kg

DRUGS (10)
  1. TEVA-NAPROXEN EC [Suspect]
     Active Substance: NAPROXEN
     Indication: BACK PAIN
  2. TEVA-NAPROXEN EC [Suspect]
     Active Substance: NAPROXEN
     Indication: SCIATICA
     Dosage: 100 MILLIGRAM DAILY;
     Route: 048
  3. COVERSYL [Concomitant]
     Active Substance: PERINDOPRIL
  4. INDAPAMIDE. [Concomitant]
     Active Substance: INDAPAMIDE
  5. TEVA-NAPROXEN EC [Suspect]
     Active Substance: NAPROXEN
     Indication: FALL
  6. LIPITOR [Concomitant]
     Active Substance: ATORVASTATIN CALCIUM
     Route: 065
  7. DILAUDID [Concomitant]
     Active Substance: HYDROMORPHONE HYDROCHLORIDE
  8. PANTOLOC [Concomitant]
     Active Substance: PANTOPRAZOLE SODIUM
     Route: 065
  9. EFFEXOR [Concomitant]
     Active Substance: VENLAFAXINE HYDROCHLORIDE
  10. VITAMIN B12 [Concomitant]
     Active Substance: CYANOCOBALAMIN
     Route: 065

REACTIONS (5)
  - Colitis ischaemic [Recovering/Resolving]
  - Colostomy [Recovering/Resolving]
  - Colectomy [Recovering/Resolving]
  - Constipation [Recovering/Resolving]
  - Abdominal pain [Recovering/Resolving]
